FAERS Safety Report 5297885-6 (Version None)
Quarter: 2007Q2

REPORT INFORMATION
  Report Type: 
  Country: None (occurrence: None)
  Receive Date: 20070406
  Receipt Date: 20070327
  Transmission Date: 20071010
  Serious: Yes (Death, Life-Threatening)
  Sender: FDA-Public Use
  Company Number: 2007-00808

PATIENT
  Age: 65 Year
  Sex: Female

DRUGS (9)
  1. VELCADE [Suspect]
     Indication: MULTIPLE MYELOMA
     Dosage: 2.00 MG
     Dates: start: 20061215, end: 20070316
  2. PREDNISOLONE [Concomitant]
  3. BAKTAR (SULFAMETHOXAZOLE, TRIMETHOPRIM) [Concomitant]
  4. ALLOPURINOL [Concomitant]
  5. BLOPRESS (CANDESARTAN CILEXETIL) [Concomitant]
  6. CALBLOCK /JPN/(AZELINIDIPINE) [Concomitant]
  7. GLIMICRON (GLICLAZIDE) [Concomitant]
  8. PRIMPERAN TAB [Concomitant]
  9. RED BLOOD CELLS [Concomitant]

REACTIONS (5)
  - COMA [None]
  - CONVULSION [None]
  - MALIGNANT NEOPLASM PROGRESSION [None]
  - PLATELET COUNT DECREASED [None]
  - RENAL IMPAIRMENT [None]
